FAERS Safety Report 9444692 (Version 3)
Quarter: 2013Q3

REPORT INFORMATION
  Report Type: Spontaneous
  Country: AU (occurrence: AU)
  Receive Date: 20130807
  Receipt Date: 20130812
  Transmission Date: 20140515
  Serious: Yes (Hospitalization, Disabling)
  Sender: FDA-Public Use
  Company Number: AU-PFIZER INC-2013227645

PATIENT
  Age: 88 Year
  Sex: Female

DRUGS (12)
  1. RAMIPRIL [Suspect]
     Dosage: 10 MG, DAILY
     Route: 048
     Dates: start: 20120626
  2. CLOPIDOGREL SULFATE [Suspect]
     Dosage: 75 MG, DAILY
     Route: 048
     Dates: start: 20120628
  3. SPIRONOLACTONE [Suspect]
     Dosage: 25 MG, DAILY
     Route: 048
     Dates: start: 20130304
  4. SALBUTAMOL [Suspect]
     Dosage: 1200 UG, DAILY
     Route: 055
     Dates: start: 20100902
  5. FUROSEMIDE [Suspect]
     Dosage: 40 MG, DAILY
     Route: 048
     Dates: start: 20120628
  6. PARACETAMOL [Suspect]
     Dosage: 3990 MG, DAILY
     Route: 048
     Dates: start: 20121030
  7. TEMAZEPAM [Suspect]
     Dosage: 10 MG, AS NEEDED
     Route: 048
     Dates: start: 20110408
  8. GLYCERYL TRINITRATE [Suspect]
     Dosage: 5 MG, DAILY
     Route: 061
     Dates: start: 20120628
  9. SYMBICORT [Suspect]
     Dosage: 200/6 UG, TWICE A DAY
     Route: 055
     Dates: start: 20101124
  10. TERBUTALINE [Suspect]
     Dosage: 2000 UG, DAILY
     Route: 055
     Dates: start: 20100902
  11. BUPRENORPHINE HYDROCHLORIDE [Suspect]
     Dosage: 5 UG, ONCE A WEEK
     Route: 061
     Dates: start: 20130414
  12. ENDONE [Suspect]
     Dosage: 5 MG, AS NEEDED
     Route: 065
     Dates: start: 20130308

REACTIONS (2)
  - Deafness bilateral [Not Recovered/Not Resolved]
  - Angioedema [Not Recovered/Not Resolved]
